FAERS Safety Report 8163284-2 (Version None)
Quarter: 2012Q1

REPORT INFORMATION
  Report Type: 
  Country: None (occurrence: None)
  Receive Date: 20120224
  Receipt Date: 20110928
  Transmission Date: 20120608
  Serious: No
  Sender: FDA-Public Use
  Company Number: US-PFIZER INC-K201101219

PATIENT
  Age: 71 Year
  Sex: Female

DRUGS (4)
  1. VOLTAREN [Suspect]
     Indication: BACK PAIN
     Route: 061
  2. CORTISONE ACETATE [Suspect]
     Indication: BACK PAIN
  3. FLECTOR [Suspect]
     Indication: BACK PAIN
     Dosage: UNK
     Route: 061
     Dates: start: 20110830
  4. IBUPROFEN [Suspect]
     Indication: BACK PAIN

REACTIONS (1)
  - DRUG INEFFECTIVE [None]
